FAERS Safety Report 8771624 (Version 1)
Quarter: 2012Q4

REPORT INFORMATION
  Report Type: 
  Country: US (occurrence: US)
  Receive Date: 20120906
  Receipt Date: 20120906
  Transmission Date: 20130627
  Serious: Yes (Other)
  Sender: FDA-Public Use
  Company Number: US-PFIZER INC-2012215243

PATIENT
  Age: 76 Year
  Sex: Male
  Weight: 86.17 kg

DRUGS (6)
  1. XALATAN [Suspect]
     Indication: OCULAR HYPERTENSION
     Dosage: 1 Gtt, 1x/day
     Route: 047
     Dates: start: 2002, end: 20120515
  2. XALATAN [Suspect]
     Dosage: 1 Gtt, 1x/day
     Route: 047
     Dates: start: 20120715
  3. LATANOPROST [Suspect]
     Indication: OCULAR HYPERTENSION
     Dosage: 1 Gtt, 1x/day
     Route: 047
     Dates: start: 20120515, end: 20120715
  4. ALPRAZOLAM [Concomitant]
     Dosage: 0.25 mg, 1x/day
  5. LEVOTHYROXINE [Concomitant]
     Dosage: 0.075 mg, 1x/day
  6. CLONIDINE [Concomitant]
     Dosage: (0.2mg one and a half tablet), 3x/day

REACTIONS (3)
  - Intraocular pressure increased [Not Recovered/Not Resolved]
  - Incorrect storage of drug [Unknown]
  - Prostatic specific antigen increased [Unknown]
